FAERS Safety Report 18581665 (Version 1)
Quarter: 2020Q4

REPORT INFORMATION
  Report Type: Spontaneous
  Country: US (occurrence: US)
  Receive Date: 20201204
  Receipt Date: 20201204
  Transmission Date: 20210114
  Serious: Yes (Other)
  Sender: FDA-Public Use
  Company Number: US-AMNEAL PHARMACEUTICALS-2020-AMRX-03807

PATIENT
  Age: 48 Year
  Sex: Female
  Weight: 80 kg

DRUGS (10)
  1. DULOXETINE. [Concomitant]
     Active Substance: DULOXETINE
     Indication: PSORIATIC ARTHROPATHY
     Dosage: UNK
     Route: 065
     Dates: start: 20200624, end: 20200916
  2. VITAMIN D [VITAMIN D NOS] [Concomitant]
     Active Substance: VITAMIN D NOS
     Indication: VITAMIN D DEFICIENCY
     Dosage: 50000 INTERNATIONAL UNIT, 1 /WEEK
     Route: 065
     Dates: start: 20200316
  3. COSENTYX [Suspect]
     Active Substance: SECUKINUMAB
     Dosage: 300 MILLIGRAM, EVERY 3 WEEKS
     Route: 065
     Dates: start: 20200703, end: 20200731
  4. COSENTYX [Suspect]
     Active Substance: SECUKINUMAB
     Dosage: UNK
     Route: 065
     Dates: start: 20200731
  5. METHOTREXATE. [Concomitant]
     Active Substance: METHOTREXATE
     Indication: PSORIASIS
     Dosage: 20 MILLIGRAM, 1 /WEEK
     Route: 065
     Dates: start: 20200222
  6. LEVOTHYROXINE SODIUM. [Suspect]
     Active Substance: LEVOTHYROXINE SODIUM
     Indication: AUTOIMMUNE THYROIDITIS
     Dosage: UNK
     Route: 048
  7. LEVOTHYROXINE SODIUM. [Suspect]
     Active Substance: LEVOTHYROXINE SODIUM
     Dosage: 100 MICROGRAM, DAILY
     Route: 048
  8. LEVOTHYROXINE SODIUM. [Suspect]
     Active Substance: LEVOTHYROXINE SODIUM
     Dosage: 112 MICROGRAM
     Route: 048
  9. COSENTYX [Suspect]
     Active Substance: SECUKINUMAB
     Indication: PSORIASIS
     Dosage: 300 MILLIGRAM, 1 /MONTH
     Route: 065
     Dates: start: 20191204, end: 20200506
  10. SILIQ [Concomitant]
     Active Substance: BRODALUMAB
     Indication: PSORIASIS
     Dosage: 210 MILLIGRAM, EVERY 2WK
     Route: 065
     Dates: start: 20200508, end: 20200603

REACTIONS (6)
  - Palpitations [Recovering/Resolving]
  - Tremor [Recovering/Resolving]
  - Weight decreased [Recovering/Resolving]
  - Condition aggravated [Recovering/Resolving]
  - Depression [Unknown]
  - Insomnia [Recovering/Resolving]

NARRATIVE: CASE EVENT DATE: 202003
